FAERS Safety Report 20696959 (Version 1)
Quarter: 2022Q2

REPORT INFORMATION
  Report Type: Spontaneous
  Country: BR (occurrence: BR)
  Receive Date: 20220411
  Receipt Date: 20220411
  Transmission Date: 20220721
  Serious: Yes (Other)
  Sender: FDA-Public Use
  Company Number: BR-PFIZER INC-202200531043

PATIENT
  Age: 29 Year
  Sex: Female

DRUGS (1)
  1. TALIGLUCERASE ALFA [Suspect]
     Active Substance: TALIGLUCERASE ALFA
     Indication: Gaucher^s disease
     Dosage: 20 BOTTLES
     Route: 042
     Dates: start: 20220311, end: 20220311

REACTIONS (5)
  - Hypertensive crisis [Recovered/Resolved]
  - Dyspnoea [Recovered/Resolved]
  - Hypotension [Recovered/Resolved]
  - Rash [Recovered/Resolved]
  - Hyperhidrosis [Recovered/Resolved]

NARRATIVE: CASE EVENT DATE: 20220311
